FAERS Safety Report 8888260 (Version 2)
Quarter: 2012Q4

REPORT INFORMATION
  Report Type: 
  Country: JP (occurrence: JP)
  Receive Date: 20121106
  Receipt Date: 20121112
  Transmission Date: 20130627
  Serious: Yes (Other)
  Sender: FDA-Public Use
  Company Number: JP-PFIZER INC-2012272206

PATIENT
  Age: 9 Year
  Sex: Female

DRUGS (3)
  1. ZITHROMAC [Suspect]
     Dosage: 250 mg, 1x/day
     Route: 048
     Dates: start: 201210
  2. EPHEDRINE [Concomitant]
     Dosage: UNK
     Route: 048
  3. ALLEGRA [Concomitant]
     Dosage: UNK
     Route: 048

REACTIONS (1)
  - Hallucination [Recovered/Resolved]
